FAERS Safety Report 9686052 (Version 1)
Quarter: 2013Q4

REPORT INFORMATION
  Report Type: Spontaneous
  Country: DE (occurrence: None)
  Receive Date: 20131108
  Receipt Date: 20131108
  Transmission Date: 20140711
  Serious: Yes (Hospitalization)
  Sender: FDA-Public Use
  Company Number: ACO_39299_2013

PATIENT
  Age: 52 Year
  Sex: Female

DRUGS (3)
  1. FAMPYRA [Suspect]
     Route: 048
     Dates: start: 201306, end: 20130902
  2. AVONEX (INTERFERON BETA-1A) [Concomitant]
  3. PARACETAMOL (PARACETAMOL) [Concomitant]

REACTIONS (4)
  - Hydronephrosis [None]
  - Pyrexia [None]
  - Off label use [None]
  - Vessel puncture site thrombosis [None]
